FAERS Safety Report 4358559-9 (Version None)
Quarter: 2004Q2

REPORT INFORMATION
  Report Type: 
  Country: None (occurrence: None)
  Receive Date: 20040512
  Receipt Date: 20040430
  Transmission Date: 20050107
  Serious: Yes (Hospitalization)
  Sender: FDA-Public Use
  Company Number: 04P-151-0259329-00

PATIENT
  Age: 63 Year
  Sex: Female
  Weight: 57 kg

DRUGS (3)
  1. HUMIRA [Suspect]
     Indication: RHEUMATOID ARTHRITIS
     Dosage: 40 MG, 1 IN 2 WK, SUBCUTANEOUS
     Route: 058
     Dates: start: 20030528, end: 20031001
  2. METHOTREXATE [Concomitant]
  3. UNSPECIFIED MEDICATION [Concomitant]

REACTIONS (6)
  - AGRANULOCYTOSIS [None]
  - ANAEMIA [None]
  - BLOOD DISORDER [None]
  - LEUKOPENIA [None]
  - LYMPHADENOPATHY [None]
  - THROMBOCYTOPENIA [None]
